FAERS Safety Report 23766268 (Version 2)
Quarter: 2024Q3

REPORT INFORMATION
  Report Type: Report from Study
  Country: US (occurrence: US)
  Receive Date: 20240422
  Receipt Date: 20240926
  Transmission Date: 20241017
  Serious: Yes (Other)
  Sender: ABBVIE
  Company Number: US-ABBVIE-5727326

PATIENT
  Sex: Female

DRUGS (1)
  1. RINVOQ [Suspect]
     Active Substance: UPADACITINIB
     Indication: Colitis ulcerative
     Route: 048
     Dates: start: 20231128

REACTIONS (11)
  - Surgical failure [Unknown]
  - Underweight [Recovering/Resolving]
  - Groin pain [Unknown]
  - Rectal prolapse [Recovering/Resolving]
  - Anaemia [Recovering/Resolving]
  - Hip surgery [Unknown]
  - Night sweats [Recovering/Resolving]
  - Acne [Recovering/Resolving]
  - Scar [Not Recovered/Not Resolved]
  - Tremor [Recovering/Resolving]
  - Nasopharyngitis [Recovering/Resolving]

NARRATIVE: CASE EVENT DATE: 20230101
